FAERS Safety Report 6219364-1 (Version None)
Quarter: 2009Q2

REPORT INFORMATION
  Report Type: 
  Country: None (occurrence: None)
  Receive Date: 20090605
  Receipt Date: 20090605
  Transmission Date: 20091009
  Serious: Yes (Hospitalization)
  Sender: FDA-Public Use
  Company Number: None

PATIENT
  Sex: Female
  Weight: 88.4514 kg

DRUGS (1)
  1. MIRENA [Suspect]
     Indication: CONTRACEPTION
     Dosage: ONE IUD STEADY FLOW INTRA-UTERINE
     Route: 015
     Dates: start: 20080615, end: 20090601

REACTIONS (2)
  - FALL [None]
  - OVARIAN CYST RUPTURED [None]
